FAERS Safety Report 18741853 (Version 2)
Quarter: 2021Q1

REPORT INFORMATION
  Report Type: Spontaneous
  Country: CA (occurrence: CA)
  Receive Date: 20210114
  Receipt Date: 20210129
  Transmission Date: 20210419
  Serious: Yes (Other)
  Sender: FDA-Public Use
  Company Number: CA-PURDUE-USA-2020-0196691

PATIENT
  Sex: Female

DRUGS (1)
  1. OXYCONTIN [Suspect]
     Active Substance: OXYCODONE HYDROCHLORIDE
     Indication: PRODUCT USED FOR UNKNOWN INDICATION
     Dosage: UNK
     Route: 048

REACTIONS (12)
  - Abdominal discomfort [Unknown]
  - Depression [Unknown]
  - Drug dependence [Unknown]
  - Condition aggravated [Unknown]
  - Incontinence [Unknown]
  - Insomnia [Unknown]
  - Suicidal ideation [Unknown]
  - Diplopia [Unknown]
  - Fatigue [Unknown]
  - Transient ischaemic attack [Unknown]
  - Amnesia [Unknown]
  - Constipation [Unknown]
